FAERS Safety Report 19684174 (Version 1)
Quarter: 2021Q3

REPORT INFORMATION
  Report Type: Spontaneous
  Country: CH (occurrence: CH)
  Receive Date: 20210811
  Receipt Date: 20210811
  Transmission Date: 20211014
  Serious: Yes (Other)
  Sender: FDA-Public Use
  Company Number: CH-ALLERGAN-2123773US

PATIENT
  Sex: Male

DRUGS (1)
  1. OZURDEX [Suspect]
     Active Substance: DEXAMETHASONE
     Indication: MACULAR OEDEMA
     Dosage: 0.7 MG, SINGLE
     Route: 031
     Dates: start: 20210511, end: 20210622

REACTIONS (5)
  - Device dislocation [Recovered/Resolved]
  - Corneal disorder [Not Recovered/Not Resolved]
  - Corneal oedema [Not Recovered/Not Resolved]
  - Corneal decompensation [Not Recovered/Not Resolved]
  - Visual acuity reduced [Not Recovered/Not Resolved]
